FAERS Safety Report 8359770-2 (Version None)
Quarter: 2012Q2

REPORT INFORMATION
  Report Type: 
  Country: None (occurrence: None)
  Receive Date: 20120515
  Receipt Date: 20120508
  Transmission Date: 20120825
  Serious: Yes (Other)
  Sender: FDA-Public Use
  Company Number: PHEH2011US00479

PATIENT
  Sex: Female

DRUGS (10)
  1. COMPAZINE [Concomitant]
     Dosage: 10 MG, PRN
  2. CELEBREX [Concomitant]
     Dosage: 200 MG, BID
  3. TOPAMAX [Concomitant]
  4. REGLAN [Concomitant]
     Dosage: 10 MG, TID
  5. ZOMETA [Suspect]
  6. NEXIUM [Concomitant]
  7. PROTONIX [Concomitant]
     Dosage: 40 MG, QD
  8. OXYCONTIN [Concomitant]
     Dosage: 80 MG,
  9. DIOVAN HCT [Concomitant]
     Dosage: 1 DF(80/12.5 MG PRN)
  10. BACLOFEN [Concomitant]

REACTIONS (26)
  - DEFORMITY [None]
  - ANXIETY [None]
  - TREMOR [None]
  - INJURY [None]
  - MIGRAINE [None]
  - OSTEONECROSIS OF JAW [None]
  - INFECTION [None]
  - EMOTIONAL DISTRESS [None]
  - CYSTITIS [None]
  - JOINT SWELLING [None]
  - WEIGHT INCREASED [None]
  - SPINAL OSTEOARTHRITIS [None]
  - CARPAL TUNNEL SYNDROME [None]
  - DEPRESSION [None]
  - RASH [None]
  - NEPHROLITHIASIS [None]
  - MUCOEPIDERMOID CARCINOMA [None]
  - ORAL NEOPLASM [None]
  - DIZZINESS [None]
  - MOUTH ULCERATION [None]
  - CHONDROMALACIA [None]
  - CONSTIPATION [None]
  - PAIN [None]
  - OVARIAN CANCER STAGE I [None]
  - IRRITABLE BOWEL SYNDROME [None]
  - FIBROMYALGIA [None]
